FAERS Safety Report 4428553-8 (Version None)
Quarter: 2004Q3

REPORT INFORMATION
  Report Type: 
  Country: None (occurrence: None)
  Receive Date: 20040813
  Receipt Date: 20040730
  Transmission Date: 20050211
  Serious: Yes (Hospitalization)
  Sender: FDA-Public Use
  Company Number: 2004GB01868

PATIENT
  Age: 73 Year
  Sex: Female

DRUGS (1)
  1. NOLVADEX [Suspect]
     Indication: BREAST CANCER
     Dosage: 20 MG PO
     Route: 048
     Dates: start: 20010101

REACTIONS (3)
  - COUGH [None]
  - DYSPNOEA [None]
  - EMPHYSEMA [None]
